FAERS Safety Report 5074968-7 (Version None)
Quarter: 2006Q3

REPORT INFORMATION
  Report Type: 
  Country: None (occurrence: None)
  Receive Date: 20060717
  Receipt Date: 20060118
  Transmission Date: 20061208
  Serious: No
  Sender: FDA-Public Use
  Company Number: 2006000162

PATIENT
  Age: 49 Year
  Sex: Male

DRUGS (10)
  1. TARCEVA [Suspect]
     Indication: NON-SMALL CELL LUNG CANCER
     Dosage: SEE IMAGE
     Route: 048
  2. LABETALOL HCL [Concomitant]
  3. L-THYROXINE (LEVOTHYROXINE SODIUM) [Concomitant]
  4. ADVAIR DISKUS 100/50 [Concomitant]
  5. OXYCONTIN [Concomitant]
  6. BACLOFEN [Concomitant]
  7. NEURONTIN [Concomitant]
  8. CODEINE COUGH SYRUP (CODEINE PHOSPHATE) [Concomitant]
  9. TESSALON [Concomitant]
  10. ATIVAN [Concomitant]

REACTIONS (1)
  - ASTHMA [None]
